FAERS Safety Report 11364009 (Version 1)
Quarter: 2015Q3

REPORT INFORMATION
  Report Type: Spontaneous
  Country: US (occurrence: None)
  Receive Date: 20150810
  Receipt Date: 20150810
  Transmission Date: 20151125
  Serious: No
  Sender: FDA-Public Use
  Company Number: None

PATIENT
  Age: 63 Year
  Sex: Male

DRUGS (2)
  1. LEDIPASVIR [Suspect]
     Active Substance: LEDIPASVIR
     Indication: HEPATITIS C
     Dosage: ONE TABLET BY MOUTH DAILY
     Route: 048
     Dates: start: 20150702, end: 20150729
  2. SOFOSBUVIR 400MG GILEAD [Suspect]
     Active Substance: SOFOSBUVIR
     Indication: HEPATITIS C
     Dosage: ONE TABLET BY MOUTH DAILY
     Route: 048
     Dates: start: 20150702, end: 20150729

REACTIONS (7)
  - Pain in extremity [None]
  - Arthralgia [None]
  - Abdominal pain upper [None]
  - Dyspepsia [None]
  - Renal pain [None]
  - Weight decreased [None]
  - Hepatic pain [None]

NARRATIVE: CASE EVENT DATE: 20150805
